FAERS Safety Report 21159614 (Version 2)
Quarter: 2022Q3

REPORT INFORMATION
  Report Type: Report from Study
  Country: CA (occurrence: CA)
  Receive Date: 20220802
  Receipt Date: 20220902
  Transmission Date: 20221027
  Serious: Yes (Other)
  Sender: FDA-Public Use
  Company Number: CA-SA-SAC20220709000117

PATIENT
  Age: 32 Year

DRUGS (17)
  1. DUPILUMAB [Suspect]
     Active Substance: DUPILUMAB
     Indication: Dermatitis atopic
     Dosage: 600 MG, 1X
     Route: 058
     Dates: start: 20220705, end: 20220705
  2. DUPILUMAB [Suspect]
     Active Substance: DUPILUMAB
     Dosage: 300 MG, QOW
     Route: 058
     Dates: start: 20220719
  3. PROTOPIC [Concomitant]
     Active Substance: TACROLIMUS
  4. BETADERM [Concomitant]
     Active Substance: BETAMETHASONE VALERATE
  5. BETAMETHASONE [Concomitant]
     Active Substance: BETAMETHASONE
  6. WELLBUTRIN XL [Concomitant]
     Active Substance: BUPROPION HYDROCHLORIDE
  7. CIPROFLOXACIN HYDROCHLORIDE [Concomitant]
     Active Substance: CIPROFLOXACIN HYDROCHLORIDE
  8. METFORMIN [Concomitant]
     Active Substance: METFORMIN HYDROCHLORIDE
  9. INSULIN NOS [Concomitant]
     Active Substance: INSULIN NOS
  10. ATORVASTATIN [Concomitant]
     Active Substance: ATORVASTATIN
  11. CANDESARTAN [Concomitant]
     Active Substance: CANDESARTAN
  12. TESTOSTERONE [Concomitant]
     Active Substance: TESTOSTERONE
  13. SYMBICORT [Concomitant]
     Active Substance: BUDESONIDE\FORMOTEROL FUMARATE DIHYDRATE
  14. DYMISTA [Concomitant]
     Active Substance: AZELASTINE HYDROCHLORIDE\FLUTICASONE PROPIONATE
  15. ALLOPURINOL [Concomitant]
     Active Substance: ALLOPURINOL
  16. PREDNISONE [Concomitant]
     Active Substance: PREDNISONE
  17. LOTEMAX [Concomitant]
     Active Substance: LOTEPREDNOL ETABONATE

REACTIONS (12)
  - Immunodeficiency [Not Recovered/Not Resolved]
  - Injection site pain [Recovered/Resolved]
  - Localised infection [Not Recovered/Not Resolved]
  - Arthralgia [Not Recovered/Not Resolved]
  - Tendon pain [Not Recovered/Not Resolved]
  - Sciatica [Not Recovered/Not Resolved]
  - Pain in extremity [Not Recovered/Not Resolved]
  - Inflammation [Not Recovered/Not Resolved]
  - Eye pruritus [Unknown]
  - Dry eye [Unknown]
  - Swelling [Unknown]
  - Weight bearing difficulty [Unknown]

NARRATIVE: CASE EVENT DATE: 20220701
